FAERS Safety Report 8588547-8 (Version None)
Quarter: 2012Q3

REPORT INFORMATION
  Report Type: 
  Country: None (occurrence: None)
  Receive Date: 20120813
  Receipt Date: 20120810
  Transmission Date: 20120928
  Serious: Yes (Other)
  Sender: FDA-Public Use
  Company Number: US-PFIZER INC-2005141741

PATIENT
  Age: 61 Year
  Sex: Female
  Weight: 77.098 kg

DRUGS (19)
  1. ZYRTEC [Suspect]
     Indication: HOUSE DUST ALLERGY
     Dosage: 10 MG, DAILY
  2. NEURONTIN [Suspect]
     Indication: NERVE INJURY
     Dosage: 100 MG, DAILY
     Route: 048
  3. TOPROL-XL [Concomitant]
     Indication: HYPERTENSION
     Dosage: UNK
     Route: 048
  4. CELEBREX [Suspect]
     Indication: ARTHRITIS
     Dosage: 1 DF, 1X/DAY
     Route: 048
     Dates: start: 19990101, end: 20020101
  5. CYMBALTA [Suspect]
     Indication: NEURALGIA
     Route: 048
  6. LYRICA [Concomitant]
     Dosage: UNK
  7. TOPROL-XL [Suspect]
     Indication: HYPERTENSION
     Dosage: UNK
     Route: 048
  8. LIPITOR [Concomitant]
     Dosage: UNK
     Route: 048
  9. BEXTRA [Suspect]
     Indication: ARTHRITIS
     Dosage: UNK
     Route: 048
     Dates: end: 20050101
  10. NEURONTIN [Suspect]
     Dosage: 100 MG, 2X/DAY
  11. POTASSIUM CHLORIDE [Suspect]
     Indication: BLOOD POTASSIUM DECREASED
     Dosage: UNK
     Dates: start: 20120101
  12. MORPHINE SULFATE [Suspect]
     Dosage: UNK
  13. NEURONTIN [Suspect]
     Indication: PAIN
     Dosage: 600 MG, 3X/DAY
  14. TOPAMAX [Suspect]
     Indication: NEURALGIA
     Dosage: UNK
     Route: 048
  15. NEURONTIN [Suspect]
     Dosage: 300 MG, 2X/DAY
  16. ASPIRIN [Concomitant]
     Dosage: UNK
     Route: 048
  17. NORVASC [Concomitant]
     Indication: HYPERTENSION
     Dosage: 5 MG, DAILY
     Route: 048
  18. MAXZIDE [Suspect]
     Indication: HYPERTENSION
     Dosage: UNK
     Route: 048
  19. GABITRIL [Suspect]
     Indication: NEURALGIA
     Dosage: 10 MG, 1X/DAY
     Route: 048

REACTIONS (21)
  - RENAL IMPAIRMENT [None]
  - CHILLS [None]
  - BLOOD POTASSIUM DECREASED [None]
  - ARTHRALGIA [None]
  - MEMORY IMPAIRMENT [None]
  - SWELLING [None]
  - KIDNEY SMALL [None]
  - BLOOD CREATININE INCREASED [None]
  - PANIC ATTACK [None]
  - NAUSEA [None]
  - VOMITING [None]
  - FEELING ABNORMAL [None]
  - CONSTIPATION [None]
  - DIABETES MELLITUS [None]
  - MENTAL IMPAIRMENT [None]
  - RENAL DISORDER [None]
  - NERVE INJURY [None]
  - FALL [None]
  - DEHYDRATION [None]
  - DRUG INEFFECTIVE [None]
  - GAIT DISTURBANCE [None]
